FAERS Safety Report 7907925-0 (Version None)
Quarter: 2011Q4

REPORT INFORMATION
  Report Type: 
  Country: None (occurrence: None)
  Receive Date: 20111110
  Receipt Date: 20111104
  Transmission Date: 20120403
  Serious: Yes (Hospitalization)
  Sender: FDA-Public Use
  Company Number: JP-ROXANE LABORATORIES, INC.-2011-RO-01588RO

PATIENT
  Age: 77 Year
  Sex: Male

DRUGS (10)
  1. SULFAMETHOXAZOLE AND TRIMETHOPRIM [Suspect]
  2. WARFARIN SODIUM [Suspect]
  3. PRAVASTATIN [Suspect]
     Indication: HYPERCHOLESTEROLAEMIA
     Route: 048
     Dates: start: 20090201, end: 20101113
  4. ALLOPURINOL [Suspect]
  5. LENALIDOMIDE [Suspect]
     Indication: MULTIPLE MYELOMA
     Dosage: 25 MG
     Route: 048
     Dates: start: 20101108, end: 20101113
  6. DEXAMETHASONE [Suspect]
     Indication: MULTIPLE MYELOMA
  7. MECOBALAMIN [Suspect]
  8. FLUCONAZOLE [Suspect]
  9. THALIDOMIDE [Suspect]
     Indication: MULTIPLE MYELOMA
     Dates: start: 20090801, end: 20100801
  10. BROTIZOLAM [Suspect]

REACTIONS (4)
  - RHABDOMYOLYSIS [None]
  - PYREXIA [None]
  - NEUROPATHY PERIPHERAL [None]
  - ABASIA [None]
